FAERS Safety Report 4479532-6 (Version None)
Quarter: 2004Q4

REPORT INFORMATION
  Report Type: 
  Country: None (occurrence: None)
  Receive Date: 20041020
  Receipt Date: 20041013
  Transmission Date: 20050328
  Serious: Yes (Other)
  Sender: FDA-Public Use
  Company Number: FR-BRISTOL-MYERS SQUIBB COMPANY-12731428

PATIENT
  Age: 73 Year
  Sex: Male

DRUGS (3)
  1. PRAVASTATIN [Suspect]
     Route: 048
  2. SELOKEN [Concomitant]
     Route: 048
  3. PREVISCAN [Concomitant]
     Route: 048

REACTIONS (1)
  - FALL [None]
